FAERS Safety Report 8347994-X (Version None)
Quarter: 2012Q2

REPORT INFORMATION
  Report Type: 
  Country: None (occurrence: None)
  Receive Date: 20120509
  Receipt Date: 20120508
  Transmission Date: 20120825
  Serious: Yes (Life-Threatening, Hospitalization, Other)
  Sender: FDA-Public Use
  Company Number: CA-NOVOPROD-343413

PATIENT
  Age: 52 Year
  Sex: Female
  Weight: 102.27 kg

DRUGS (24)
  1. NOVORAPID FLEXPEN [Suspect]
     Indication: TYPE 2 DIABETES MELLITUS
     Dosage: 2 U, QD
     Route: 058
     Dates: start: 20110623, end: 20110629
  2. INSULIN DETEMIR FLEXPEN [Suspect]
     Dosage: 120 U, QD
     Route: 058
     Dates: start: 20110514, end: 20110516
  3. DALTEPARIN SODIUM [Concomitant]
     Dosage: 5000 U, QD
     Route: 058
     Dates: start: 20120116, end: 20120117
  4. NOVORAPID FLEXPEN [Suspect]
     Dosage: 300 U, SINGLE
     Dates: start: 20120115, end: 20120115
  5. INSULIN DETEMIR FLEXPEN [Suspect]
     Dosage: 123 U, QD
     Dates: start: 20110607, end: 20110609
  6. INSULIN DETEMIR FLEXPEN [Suspect]
     Dosage: 123 U, QD
     Route: 058
     Dates: start: 20120118, end: 20120131
  7. INSULIN DETEMIR FLEXPEN [Suspect]
     Dosage: 126 U, QD
     Route: 058
     Dates: start: 20111103, end: 20111114
  8. INSULIN DETEMIR FLEXPEN [Suspect]
     Dosage: 126 U, QD
     Route: 058
     Dates: start: 20111115, end: 20111215
  9. INSULIN DETEMIR FLEXPEN [Suspect]
     Dosage: 132 U, QD
     Route: 058
     Dates: start: 20111020, end: 20111026
  10. INSULIN DETEMIR FLEXPEN [Suspect]
     Indication: TYPE 2 DIABETES MELLITUS
     Dosage: 120 U, QD
     Route: 058
     Dates: start: 20110416, end: 20110418
  11. INSULIN DETEMIR FLEXPEN [Suspect]
     Dosage: 123 U, QD
     Route: 058
     Dates: start: 20110528, end: 20110530
  12. INSULIN DETEMIR FLEXPEN [Suspect]
     Dosage: 129 U, QD
     Dates: start: 20110618, end: 20110620
  13. POTASSIUM CHLORIDE [Concomitant]
     Dosage: 3600 (1200 X 3) MG,
     Route: 048
     Dates: start: 20120116, end: 20120117
  14. SIMVASTATIN [Concomitant]
     Dosage: 20 MG, QD
     Route: 048
     Dates: start: 20120116, end: 20120117
  15. INSULIN DETEMIR FLEXPEN [Suspect]
     Dosage: 120 U, QD
     Route: 058
     Dates: start: 20110430, end: 20110502
  16. INSULIN DETEMIR FLEXPEN [Suspect]
     Dosage: 132 U, QD
     Route: 058
     Dates: start: 20110623, end: 20110914
  17. INSULIN DETEMIR FLEXPEN [Suspect]
     Dosage: 123 U, QD
     Route: 058
     Dates: start: 20111215, end: 20120115
  18. INSULIN DETEMIR FLEXPEN [Suspect]
     Dosage: 120 U, QD
     Route: 058
     Dates: start: 20110423, end: 20110425
  19. INSULIN DETEMIR FLEXPEN [Suspect]
     Dosage: 120 U, QD
     Route: 058
     Dates: start: 20110507, end: 20110509
  20. INSULIN DETEMIR FLEXPEN [Suspect]
     Dosage: 120 U, QD
     Route: 058
     Dates: start: 20110521, end: 20110523
  21. INSULIN DETEMIR FLEXPEN [Suspect]
     Dosage: 129 U, QD
     Route: 058
     Dates: start: 20111027, end: 20111102
  22. RAMIPRIL [Concomitant]
     Dosage: 10 MG, QD
     Route: 048
     Dates: start: 20120117, end: 20120117
  23. NOVORAPID FLEXPEN [Suspect]
     Dosage: 134 U, QD
     Route: 058
     Dates: start: 20120118, end: 20120131
  24. INSULIN DETEMIR FLEXPEN [Suspect]
     Dosage: 129 U, QD
     Route: 058
     Dates: start: 20110915, end: 20111019

REACTIONS (2)
  - INTENTIONAL OVERDOSE [None]
  - ACUTE STRESS DISORDER [None]
